FAERS Safety Report 7575624-3 (Version None)
Quarter: 2011Q2

REPORT INFORMATION
  Report Type: 
  Country: None (occurrence: None)
  Receive Date: 20110628
  Receipt Date: 20110614
  Transmission Date: 20111010
  Serious: Yes (Hospitalization)
  Sender: FDA-Public Use
  Company Number: CH-MYLANLABS-2011S1012627

PATIENT
  Age: 25 Year
  Sex: Female

DRUGS (2)
  1. ZONISAMIDE [Suspect]
     Indication: SUICIDE ATTEMPT
     Dosage: 126 X 100MG TABLETS
     Route: 048
  2. ZONISAMIDE [Suspect]
     Indication: OVERDOSE
     Dosage: 126 X 100MG TABLETS
     Route: 048

REACTIONS (16)
  - METABOLIC ACIDOSIS [None]
  - VOMITING [None]
  - WHITE BLOOD CELL COUNT INCREASED [None]
  - DEPRESSED LEVEL OF CONSCIOUSNESS [None]
  - INTENTIONAL OVERDOSE [None]
  - ELECTROCARDIOGRAM QT PROLONGED [None]
  - SUICIDE ATTEMPT [None]
  - LACTIC ACIDOSIS [None]
  - ELECTROCARDIOGRAM QRS COMPLEX PROLONGED [None]
  - MYOCLONUS [None]
  - TACHYCARDIA [None]
  - POLYURIA [None]
  - HYPOTENSION [None]
  - NEUROTOXICITY [None]
  - SOMNOLENCE [None]
  - DIPLOPIA [None]
